FAERS Safety Report 4512012-8 (Version None)
Quarter: 2004Q4

REPORT INFORMATION
  Report Type: 
  Country: None (occurrence: None)
  Receive Date: 20041129
  Receipt Date: 20040719
  Transmission Date: 20050328
  Serious: No
  Sender: FDA-Public Use
  Company Number: US-BRISTOL-MYERS SQUIBB COMPANY-12645081

PATIENT
  Age: 47 Year
  Sex: Male
  Weight: 67 kg

DRUGS (4)
  1. SUSTIVA [Suspect]
     Indication: HIV INFECTION
     Route: 048
  2. SODIUM CHLORIDE [Concomitant]
  3. AZT [Concomitant]
  4. DDC [Concomitant]

REACTIONS (1)
  - GYNAECOMASTIA [None]
